FAERS Safety Report 17612988 (Version 3)
Quarter: 2020Q2

REPORT INFORMATION
  Report Type: Report from Study
  Country: CA (occurrence: CA)
  Receive Date: 20200401
  Receipt Date: 20200608
  Transmission Date: 20200713
  Serious: Yes (Death, Hospitalization, Other)
  Sender: FDA-Public Use
  Company Number: CA-HLS-202000240

PATIENT
  Age: 66 Year
  Sex: Female
  Weight: 65 kg

DRUGS (7)
  1. LORAZEPAM. [Concomitant]
     Active Substance: LORAZEPAM
     Indication: PALLIATIVE CARE
     Dosage: PO OR SC?UP TO 2MG
     Route: 065
     Dates: start: 20200323, end: 20200509
  2. CLOZARIL [Suspect]
     Active Substance: CLOZAPINE
     Indication: SCHIZOPHRENIA
     Dosage: UNKNOWN
     Route: 048
     Dates: start: 20110104, end: 20200415
  3. CLOZARIL [Suspect]
     Active Substance: CLOZAPINE
     Indication: SCHIZOPHRENIA
     Route: 048
     Dates: start: 20110104, end: 20200415
  4. CLOZARIL [Suspect]
     Active Substance: CLOZAPINE
     Indication: SCHIZOPHRENIA
     Dosage: STABILIZED OF 300 MG?STARTED MID FEB-2009
     Route: 048
     Dates: start: 200902, end: 20200415
  5. HYDROMORPHONE [Concomitant]
     Active Substance: HYDROMORPHONE
     Indication: PALLIATIVE CARE
     Dosage: 3MG
     Route: 058
     Dates: start: 20200304, end: 20200509
  6. SCOPOLAMINE [Concomitant]
     Active Substance: SCOPOLAMINE
     Indication: PALLIATIVE CARE
     Dosage: UP TO 0.6 MG
     Route: 058
     Dates: start: 20200416, end: 20200509
  7. HALDOL [Concomitant]
     Active Substance: HALOPERIDOL
     Indication: PALLIATIVE CARE
     Dosage: UP TO 2MG
     Route: 058
     Dates: start: 20200430, end: 20200509

REACTIONS (2)
  - Oropharyngeal cancer [Fatal]
  - Dysphagia [Not Recovered/Not Resolved]

NARRATIVE: CASE EVENT DATE: 201911
